FAERS Safety Report 24604372 (Version 1)
Quarter: 2024Q4

REPORT INFORMATION
  Report Type: Spontaneous
  Country: US (occurrence: None)
  Receive Date: 20241107
  Receipt Date: 20241107
  Transmission Date: 20250115
  Serious: Yes (Other)
  Sender: Public
  Company Number: None

PATIENT
  Age: 63 Year
  Sex: Female
  Weight: 54 kg

DRUGS (1)
  1. COSMETICS [Suspect]
     Active Substance: COSMETICS
     Indication: Skin cosmetic procedure
     Dates: start: 20241018, end: 20241018

REACTIONS (2)
  - Injection site swelling [None]
  - Off label use [None]

NARRATIVE: CASE EVENT DATE: 20241024
